FAERS Safety Report 20907967 (Version 2)
Quarter: 2022Q2

REPORT INFORMATION
  Report Type: Spontaneous
  Country: GR (occurrence: GR)
  Receive Date: 20220602
  Receipt Date: 20220615
  Transmission Date: 20220721
  Serious: Yes (Other)
  Sender: FDA-Public Use
  Company Number: GR-TEVA-2022-GR-2042086

PATIENT
  Age: 55 Year
  Sex: Male

DRUGS (30)
  1. OXALIPLATIN [Suspect]
     Active Substance: OXALIPLATIN
     Indication: Colorectal adenocarcinoma
     Dosage: XELOX REGIMEN
     Route: 065
  2. OXALIPLATIN [Suspect]
     Active Substance: OXALIPLATIN
     Dosage: FOLFIRINOX REGIMEN
     Route: 065
  3. CAPECITABINE [Suspect]
     Active Substance: CAPECITABINE
     Indication: Colorectal adenocarcinoma
     Dosage: XELOX REGIMEN
     Route: 065
  4. BEVACIZUMAB [Suspect]
     Active Substance: BEVACIZUMAB
     Indication: Colorectal adenocarcinoma
     Route: 065
  5. LEUCOVORIN [Suspect]
     Active Substance: LEUCOVORIN
     Indication: Colorectal adenocarcinoma
     Dosage: FOLFIRI REGIMEN
     Route: 065
  6. LEUCOVORIN [Suspect]
     Active Substance: LEUCOVORIN
     Dosage: FOLFIRINOX REGIMEN
     Route: 065
  7. FLUOROURACIL [Suspect]
     Active Substance: FLUOROURACIL
     Indication: Colorectal adenocarcinoma
     Dosage: FOLFIRI REGIMEN
     Route: 065
  8. FLUOROURACIL [Suspect]
     Active Substance: FLUOROURACIL
     Dosage: FOLFIRINOX REGIMEN
     Route: 065
  9. IRINOTECAN [Suspect]
     Active Substance: IRINOTECAN
     Indication: Colorectal adenocarcinoma
     Dosage: FOLFIRI REGIMEN
     Route: 065
  10. IRINOTECAN [Suspect]
     Active Substance: IRINOTECAN
     Dosage: FOLFIRINOX REGIMEN
     Route: 065
  11. IRINOTECAN [Suspect]
     Active Substance: IRINOTECAN
     Dosage: OFF-LABEL COMBINATION OF IRINOTECAN AND OLAPARIB; IV INFUSION OF IRINOTECAN AT 125MG/M2 (ON DAY 1)
     Route: 041
     Dates: start: 202106
  12. AFLIBERCEPT [Suspect]
     Active Substance: AFLIBERCEPT
     Indication: Colorectal adenocarcinoma
     Dosage: THE PATIENT RECEIVED AFLIBERCEPT ALONG WITH FOLFIRI REGIMEN
     Route: 065
  13. AFLIBERCEPT [Suspect]
     Active Substance: AFLIBERCEPT
     Dosage: THE PATIENT RECEIVED AFLIBERCEPT ALONG WITH TRIFLURIDINE/TIPIRACIL
     Route: 065
  14. LONSURF [Suspect]
     Active Substance: TIPIRACIL HYDROCHLORIDE\TRIFLURIDINE
     Indication: Colorectal adenocarcinoma
     Route: 065
  15. PEMBROLIZUMAB [Suspect]
     Active Substance: PEMBROLIZUMAB
     Indication: Colorectal adenocarcinoma
     Route: 065
     Dates: start: 202104, end: 202105
  16. OLAPARIB [Suspect]
     Active Substance: OLAPARIB
     Indication: Colorectal adenocarcinoma
     Dosage: 100 MILLIGRAM DAILY; OFF-LABEL COMBINATION OF IRINOTECAN AND OLAPARIB; OLAPARIB 50MG CAPSULES TWICE
     Route: 065
     Dates: start: 202106
  17. REGORAFENIB [Concomitant]
     Active Substance: REGORAFENIB
     Indication: Colorectal adenocarcinoma
     Route: 065
     Dates: start: 202104, end: 202105
  18. LANSOPRAZOLE [Concomitant]
     Active Substance: LANSOPRAZOLE
     Indication: Product used for unknown indication
     Dosage: 30 MILLIGRAM DAILY;
     Route: 065
  19. DEXAMETHASONE [Concomitant]
     Active Substance: DEXAMETHASONE
     Indication: Product used for unknown indication
     Dosage: 4 MILLIGRAM DAILY;
     Route: 065
  20. FENTANYL [Concomitant]
     Active Substance: FENTANYL
     Indication: Pain
     Route: 062
  21. FENTANYL [Concomitant]
     Active Substance: FENTANYL
     Route: 048
  22. IPRATROPIUM [Concomitant]
     Active Substance: IPRATROPIUM
     Indication: Product used for unknown indication
     Route: 050
  23. BUDESONIDE [Concomitant]
     Active Substance: BUDESONIDE
     Indication: Product used for unknown indication
     Route: 050
  24. METOPROLOL [Concomitant]
     Active Substance: METOPROLOL
     Indication: Product used for unknown indication
     Dosage: 100 MILLIGRAM DAILY;
     Route: 065
  25. LEVOTHYROXINE [Concomitant]
     Active Substance: LEVOTHYROXINE
     Indication: Product used for unknown indication
     Dosage: 12 MICROGRAM DAILY;
     Route: 065
  26. PARACETAMOL/CODEINE/CAFFEINE [Concomitant]
     Indication: Pain
     Route: 065
  27. METOCLOPRAMIDE [Concomitant]
     Active Substance: METOCLOPRAMIDE
     Indication: Nausea
     Route: 065
  28. PARAFFIN OIL [Concomitant]
     Indication: Constipation
     Route: 065
  29. MIRTAZAPINE [Concomitant]
     Active Substance: MIRTAZAPINE
     Indication: Decreased appetite
     Dosage: 15 MILLIGRAM DAILY;
     Route: 065
  30. GRANISETRON [Concomitant]
     Active Substance: GRANISETRON
     Indication: Nausea
     Route: 062

REACTIONS (3)
  - Immune-mediated hepatic disorder [Unknown]
  - Drug ineffective [Unknown]
  - Off label use [Unknown]
